FAERS Safety Report 9350891 (Version 2)
Quarter: 2014Q1

REPORT INFORMATION
  Report Type: Spontaneous
  Country: IT (occurrence: IT)
  Receive Date: 20130617
  Receipt Date: 20140331
  Transmission Date: 20141002
  Serious: Yes (Hospitalization)
  Sender: FDA-Public Use
  Company Number: IT-ROCHE-1237158

PATIENT
  Age: 48 Year
  Sex: Female

DRUGS (4)
  1. RIVOTRIL [Suspect]
     Indication: INTENTIONAL OVERDOSE
     Route: 065
     Dates: start: 20130426
  2. LEXOTAN [Suspect]
     Indication: INTENTIONAL OVERDOSE
     Route: 048
     Dates: start: 20130426
  3. SEREUPIN [Suspect]
     Indication: INTENTIONAL OVERDOSE
     Route: 048
     Dates: start: 20130426
  4. TAVOR (ITALY) [Suspect]
     Indication: INTENTIONAL OVERDOSE
     Route: 065
     Dates: start: 20130426

REACTIONS (3)
  - Head injury [Recovered/Resolved]
  - Suicide attempt [Recovered/Resolved]
  - Sopor [Recovered/Resolved]
